FAERS Safety Report 25215794 (Version 1)
Quarter: 2025Q2

REPORT INFORMATION
  Report Type: Spontaneous
  Country: US (occurrence: None)
  Receive Date: 20250418
  Receipt Date: 20250418
  Transmission Date: 20250716
  Serious: Yes (Hospitalization)
  Sender: FDA-CTU
  Company Number: None

PATIENT
  Age: 42 Year
  Sex: Female
  Weight: 63.9 kg

DRUGS (3)
  1. BENLYSTA [Suspect]
     Active Substance: BELIMUMAB
     Indication: Systemic lupus erythematosus
     Dates: start: 20160715, end: 20250326
  2. VITAMIN D [Concomitant]
     Active Substance: VITAMIN D NOS
  3. FOLATE SODIUM [Concomitant]
     Active Substance: FOLATE SODIUM

REACTIONS (4)
  - Chest pain [None]
  - Chest discomfort [None]
  - Dizziness [None]
  - Blood pressure increased [None]

NARRATIVE: CASE EVENT DATE: 20250326
